FAERS Safety Report 24617183 (Version 1)
Quarter: 2024Q4

REPORT INFORMATION
  Report Type: Spontaneous
  Country: US (occurrence: US)
  Receive Date: 20241114
  Receipt Date: 20241114
  Transmission Date: 20250115
  Serious: Yes (Other)
  Sender: COOPERSURGICAL
  Company Number: US-COOPERSURGICAL, INC.-2024CPS003370

PATIENT
  Age: 50 Year
  Sex: Female
  Weight: 63.946 kg

DRUGS (1)
  1. PARAGARD T 380A [Suspect]
     Active Substance: COPPER
     Dosage: UNK
     Route: 015
     Dates: start: 20090929

REACTIONS (12)
  - Reproductive complication associated with device [Not Recovered/Not Resolved]
  - Hysterectomy [Not Recovered/Not Resolved]
  - Salpingectomy [Not Recovered/Not Resolved]
  - Foreign body in urogenital tract [Not Recovered/Not Resolved]
  - Complication of device removal [Not Recovered/Not Resolved]
  - Device material issue [Unknown]
  - Anxiety [Not Recovered/Not Resolved]
  - Choking [Unknown]
  - Pain [Not Recovered/Not Resolved]
  - Discomfort [Not Recovered/Not Resolved]
  - Intentional device use issue [Recovered/Resolved]
  - Off label use [Unknown]

NARRATIVE: CASE EVENT DATE: 20180101
